FAERS Safety Report 18592255 (Version 2)
Quarter: 2021Q2

REPORT INFORMATION
  Report Type: Spontaneous
  Country: AU (occurrence: AU)
  Receive Date: 20201208
  Receipt Date: 20210412
  Transmission Date: 20210717
  Serious: Yes (Hospitalization)
  Sender: FDA-Public Use
  Company Number: NVSC2020AU319446

PATIENT

DRUGS (1)
  1. PROBITOR (OMEPRAZOLE) [Suspect]
     Active Substance: OMEPRAZOLE
     Indication: PRODUCT USED FOR UNKNOWN INDICATION
     Dosage: UNK
     Route: 065
     Dates: start: 20201030

REACTIONS (3)
  - Cough [Unknown]
  - Gastrooesophageal reflux disease [Unknown]
  - Burning sensation [Unknown]

NARRATIVE: CASE EVENT DATE: 202011
